FAERS Safety Report 5705235-3 (Version None)
Quarter: 2008Q2

REPORT INFORMATION
  Report Type: 
  Country: None (occurrence: None)
  Receive Date: 20080410
  Receipt Date: 20080327
  Transmission Date: 20081010
  Serious: Yes (Other)
  Sender: FDA-Public Use
  Company Number: B0515456A

PATIENT
  Age: 71 Year
  Sex: Female

DRUGS (2)
  1. FONDAPARINUX SODIUM (GENERIC) [Suspect]
     Indication: THROMBOSIS PROPHYLAXIS
     Dosage: 2.5 MG / FOUR TIMES PER DAY / SUBCUT
     Route: 058
     Dates: start: 20070401
  2. NADROPARINE CALCIUM (FORMULATION UNKNOWN) (GENERIC) (NADROPARINE CALCI [Suspect]
     Indication: THROMBOSIS PROPHYLAXIS
     Dosage: SUBCUTANEOUS
     Route: 058
     Dates: start: 20040201

REACTIONS (1)
  - HEPARIN-INDUCED THROMBOCYTOPENIA [None]
